FAERS Safety Report 7405448-9 (Version None)
Quarter: 2011Q2

REPORT INFORMATION
  Report Type: 
  Country: None (occurrence: None)
  Receive Date: 20110411
  Receipt Date: 20110331
  Transmission Date: 20111010
  Serious: Yes (Other)
  Sender: FDA-Public Use
  Company Number: US-RB-020663-11

PATIENT
  Age: 48 Year
  Sex: Male

DRUGS (4)
  1. ASPIRIN [Concomitant]
     Indication: PRODUCT USED FOR UNKNOWN INDICATION
  2. MUCINEX DM [Suspect]
     Indication: PRODUCT USED FOR UNKNOWN INDICATION
     Route: 048
  3. HYDROCODEINE [Concomitant]
     Indication: PAIN
  4. ASA HYDROCODONE BLOOD PILLS [Concomitant]
     Indication: PRODUCT USED FOR UNKNOWN INDICATION

REACTIONS (8)
  - ABDOMINAL DISTENSION [None]
  - HAEMATOCHEZIA [None]
  - DIZZINESS [None]
  - VOMITING [None]
  - FLUSHING [None]
  - ABDOMINAL PAIN [None]
  - CONFUSIONAL STATE [None]
  - SOMNOLENCE [None]
